FAERS Safety Report 25140409 (Version 1)
Quarter: 2025Q1

REPORT INFORMATION
  Report Type: Spontaneous
  Country: US (occurrence: None)
  Receive Date: 20250328
  Receipt Date: 20250328
  Transmission Date: 20250408
  Serious: No
  Sender: FDA-CTU
  Company Number: None

PATIENT
  Age: 68 Year
  Sex: Male

DRUGS (2)
  1. CEFEPIME HYDROCHLORIDE [Suspect]
     Active Substance: CEFEPIME HYDROCHLORIDE
  2. DAPTOMYCIN [Suspect]
     Active Substance: DAPTOMYCIN

REACTIONS (6)
  - Neurotoxicity [None]
  - Dysarthria [None]
  - Aphasia [None]
  - Ataxia [None]
  - Confusional state [None]
  - Toxicity to various agents [None]

NARRATIVE: CASE EVENT DATE: 20250204
